FAERS Safety Report 4475319-9 (Version None)
Quarter: 2004Q4

REPORT INFORMATION
  Report Type: 
  Country: None (occurrence: None)
  Receive Date: 20041012
  Receipt Date: 20040927
  Transmission Date: 20050328
  Serious: Yes (Other)
  Sender: FDA-Public Use
  Company Number: 2004043843

PATIENT
  Age: 73 Year
  Sex: Male

DRUGS (6)
  1. LIPITOR [Suspect]
     Indication: ILL-DEFINED DISORDER
     Dosage: ORAL
     Route: 048
     Dates: start: 20020101
  2. VERAPAMIL [Concomitant]
  3. FEXOFENADINE HYDROCHLORIDE [Concomitant]
  4. SERTRALINE HCL [Concomitant]
  5. CLOPIDOGREL BISULFATE [Concomitant]
  6. DYAZIDE [Concomitant]

REACTIONS (3)
  - CEREBROVASCULAR ACCIDENT [None]
  - HYPOAESTHESIA [None]
  - WEIGHT INCREASED [None]
